FAERS Safety Report 25286032 (Version 2)
Quarter: 2025Q2

REPORT INFORMATION
  Report Type: Report from Study
  Country: CA (occurrence: CA)
  Receive Date: 20250509
  Receipt Date: 20250519
  Transmission Date: 20250716
  Serious: No
  Sender: SANOFI AVENTIS
  Company Number: CA-SA-SAC20230419000098

PATIENT
  Age: 75 Year
  Sex: Male

DRUGS (29)
  1. ISATUXIMAB [Suspect]
     Active Substance: ISATUXIMAB
     Indication: Plasma cell myeloma refractory
     Dosage: 1000 MG, QOW
     Route: 042
     Dates: start: 20201104, end: 2024
  2. ISATUXIMAB [Suspect]
     Active Substance: ISATUXIMAB
     Dates: start: 20230428
  3. ISATUXIMAB [Suspect]
     Active Substance: ISATUXIMAB
     Dates: start: 20230721
  4. ISATUXIMAB [Suspect]
     Active Substance: ISATUXIMAB
     Dates: start: 20231117
  5. ISATUXIMAB [Suspect]
     Active Substance: ISATUXIMAB
     Dates: start: 20231117
  6. ISATUXIMAB [Suspect]
     Active Substance: ISATUXIMAB
     Dates: start: 20231201
  7. ISATUXIMAB [Suspect]
     Active Substance: ISATUXIMAB
     Dates: start: 20231201
  8. ISATUXIMAB [Suspect]
     Active Substance: ISATUXIMAB
     Dates: start: 20231215
  9. ISATUXIMAB [Suspect]
     Active Substance: ISATUXIMAB
     Dates: start: 20231215
  10. ISATUXIMAB [Suspect]
     Active Substance: ISATUXIMAB
     Dates: start: 20231229
  11. ACYCLOVIR [Concomitant]
     Active Substance: ACYCLOVIR
     Indication: Antiviral treatment
  12. ASPIRIN [Concomitant]
     Active Substance: ASPIRIN
     Route: 065
  13. LORAZEPAM [Concomitant]
     Active Substance: LORAZEPAM
     Indication: Anxiety
     Route: 065
  14. TRAZODONE [Concomitant]
     Active Substance: TRAZODONE HYDROCHLORIDE
     Indication: Insomnia
     Route: 065
  15. CUVITRU [Concomitant]
     Active Substance: HUMAN IMMUNOGLOBULIN G
     Dosage: 12 G, QW
  16. POMALYST [Concomitant]
     Active Substance: POMALIDOMIDE
  17. DEXAMETHASONE [Concomitant]
     Active Substance: DEXAMETHASONE
     Dosage: 12 G, QOW
  18. TYLENOL [Concomitant]
     Active Substance: ACETAMINOPHEN
  19. PROCHLORAZINE [Concomitant]
     Indication: Nausea
  20. JUBLIA [Concomitant]
     Active Substance: EFINACONAZOLE
     Dosage: UNK UNK, QD
  21. CITALOPRAM [Concomitant]
     Active Substance: CITALOPRAM
     Indication: Depression
     Dates: start: 20240121, end: 20240131
  22. CITALOPRAM [Concomitant]
     Active Substance: CITALOPRAM
     Dosage: 20 MG, QD
     Dates: start: 20240201, end: 20240211
  23. CITALOPRAM [Concomitant]
     Active Substance: CITALOPRAM
     Dates: start: 20240212, end: 20240221
  24. VENLAFAXINE [Concomitant]
     Active Substance: VENLAFAXINE HYDROCHLORIDE
     Indication: Depression
     Dates: start: 20240121, end: 20240131
  25. VENLAFAXINE [Concomitant]
     Active Substance: VENLAFAXINE HYDROCHLORIDE
     Dates: start: 20240201, end: 20240211
  26. VENLAFAXINE [Concomitant]
     Active Substance: VENLAFAXINE HYDROCHLORIDE
     Dates: start: 20240212
  27. ASPIRIN [Concomitant]
     Active Substance: ASPIRIN
     Indication: Blood disorder
     Dosage: 81 MG, QD
  28. MIRTAZAPINE [Concomitant]
     Active Substance: MIRTAZAPINE
     Dosage: FOR 10 DAYS
  29. MIRTAZAPINE [Concomitant]
     Active Substance: MIRTAZAPINE

REACTIONS (15)
  - Asthenia [Not Recovered/Not Resolved]
  - Sensory disturbance [Not Recovered/Not Resolved]
  - Heart rate decreased [Not Recovered/Not Resolved]
  - Somnolence [Unknown]
  - Asthenia [Not Recovered/Not Resolved]
  - Constipation [Not Recovered/Not Resolved]
  - Blood pressure abnormal [Not Recovered/Not Resolved]
  - Injury [Recovering/Resolving]
  - Pain [Recovering/Resolving]
  - Fatigue [Recovering/Resolving]
  - Nausea [Not Recovered/Not Resolved]
  - Cough [Recovering/Resolving]
  - Dyspnoea [Recovering/Resolving]
  - Intentional dose omission [Not Recovered/Not Resolved]
  - Inappropriate schedule of product administration [Unknown]

NARRATIVE: CASE EVENT DATE: 20230612
